FAERS Safety Report 11241315 (Version 1)
Quarter: 2015Q3

REPORT INFORMATION
  Report Type: Spontaneous
  Country: US (occurrence: US)
  Receive Date: 20150706
  Receipt Date: 20150706
  Transmission Date: 20151125
  Serious: No
  Sender: FDA-Public Use
  Company Number: US-LEO PHARMA-235382

PATIENT
  Age: 49 Year
  Sex: Female

DRUGS (1)
  1. PICATO [Suspect]
     Active Substance: INGENOL MEBUTATE
     Indication: PRODUCT USED FOR UNKNOWN INDICATION
     Route: 061
     Dates: start: 20150628

REACTIONS (1)
  - Application site vesicles [Not Recovered/Not Resolved]

NARRATIVE: CASE EVENT DATE: 20150629
